FAERS Safety Report 6307883-9 (Version None)
Quarter: 2009Q3

REPORT INFORMATION
  Report Type: 
  Country: None (occurrence: None)
  Receive Date: 20090812
  Receipt Date: 20090812
  Transmission Date: 20100115
  Serious: Yes (Hospitalization)
  Sender: FDA-Public Use
  Company Number: None

PATIENT
  Sex: Male
  Weight: 61.2356 kg

DRUGS (2)
  1. VIDAZA [Suspect]
     Indication: PROSTATE CANCER
     Dosage: 150 MG IV
     Route: 042
     Dates: start: 20090427
  2. DOCETAXEL [Suspect]
     Indication: PROSTATE CANCER
     Dosage: 75 MG IV
     Route: 042
     Dates: start: 20090427

REACTIONS (4)
  - ANAEMIA [None]
  - GAIT DISTURBANCE [None]
  - HYPONATRAEMIA [None]
  - NEUTROPENIA [None]
